FAERS Safety Report 7041978 (Version 9)
Quarter: 2014Q2

REPORT INFORMATION
  Report Type: Spontaneous
  Country: US (occurrence: US)
  Receive Date: 20090706
  Receipt Date: 20140410
  Transmission Date: 20141212
  Serious: Yes (Hospitalization, Other)
  Sender: FDA-Public Use
  Company Number: US-ALEXION-A200900224

PATIENT
  Age: 49 Year
  Sex: Female

DRUGS (1)
  1. SOLIRIS [Suspect]
     Indication: PAROXYSMAL NOCTURNAL HAEMOGLOBINURIA
     Dosage: UNK
     Route: 042

REACTIONS (9)
  - Hepatic encephalopathy [Unknown]
  - Convulsion [Recovering/Resolving]
  - Condition aggravated [Unknown]
  - Mental status changes [Unknown]
  - Budd-Chiari syndrome [Unknown]
  - Hepatic function abnormal [Unknown]
  - Amnesia [Unknown]
  - Confusional state [Unknown]
  - Blood pressure abnormal [Recovering/Resolving]
